FAERS Safety Report 14170409 (Version 6)
Quarter: 2019Q3

REPORT INFORMATION
  Report Type: Spontaneous
  Country: IN (occurrence: IN)
  Receive Date: 20171108
  Receipt Date: 20190814
  Transmission Date: 20191004
  Serious: Yes (Death, Hospitalization, Other)
  Sender: FDA-Public Use
  Company Number: IN-JNJFOC-20171106274

PATIENT

DRUGS (7)
  1. CISPLATIN. [Suspect]
     Active Substance: CISPLATIN
     Indication: OSTEOSARCOMA
     Route: 065
  2. IFOSFAMIDE. [Suspect]
     Active Substance: IFOSFAMIDE
     Dosage: 2 G/M2 ON DAY1-5 WITH MESNA
     Route: 065
  3. CISPLATIN. [Suspect]
     Active Substance: CISPLATIN
     Dosage: (100 MG/M2 ON DAY 1)
     Route: 065
  4. DOXORUBICIN HYDROCHLORIDE. [Suspect]
     Active Substance: DOXORUBICIN HYDROCHLORIDE
     Indication: OSTEOSARCOMA
     Route: 065
  5. DOXORUBICIN HYDROCHLORIDE. [Suspect]
     Active Substance: DOXORUBICIN HYDROCHLORIDE
     Dosage: 20 MG/M2 ON DAY 1-3
     Route: 065
  6. IFOSFAMIDE. [Suspect]
     Active Substance: IFOSFAMIDE
     Indication: OSTEOSARCOMA
     Route: 065
  7. MESNA. [Suspect]
     Active Substance: MESNA
     Indication: OSTEOSARCOMA
     Route: 065

REACTIONS (20)
  - Thrombocytopenia [Unknown]
  - Diarrhoea [Unknown]
  - Blood creatinine increased [Unknown]
  - Deafness [Unknown]
  - Sepsis [Fatal]
  - Cardiac failure [Unknown]
  - Glomerular filtration rate decreased [Unknown]
  - Hepatic enzyme increased [Unknown]
  - Myelodysplastic syndrome [Fatal]
  - Febrile neutropenia [Fatal]
  - Anaemia [Unknown]
  - Hyperbilirubinaemia [Unknown]
  - Stomatitis [Unknown]
  - Off label use [Unknown]
  - Product use in unapproved indication [Unknown]
  - Acute kidney injury [Unknown]
  - Ejection fraction decreased [Unknown]
  - Acute myeloid leukaemia [Fatal]
  - Vomiting [Unknown]
  - Pharyngitis [Unknown]
